FAERS Safety Report 8482419-5 (Version None)
Quarter: 2012Q3

REPORT INFORMATION
  Report Type: 
  Country: None (occurrence: None)
  Receive Date: 20120702
  Receipt Date: 20120620
  Transmission Date: 20120928
  Serious: Yes (Death, Hospitalization)
  Sender: FDA-Public Use
  Company Number: US-GLAXOSMITHKLINE-A0935418A

PATIENT
  Age: 59 Year
  Sex: Female
  Weight: 94.5 kg

DRUGS (5)
  1. ACCUPRIL [Concomitant]
  2. TOPROL-XL [Concomitant]
  3. RESTORIL [Concomitant]
  4. AVANDIA [Suspect]
     Indication: DIABETES MELLITUS
     Dosage: 4MG PER DAY
     Route: 048
     Dates: start: 20021201, end: 20030101
  5. PROTONIX [Concomitant]

REACTIONS (5)
  - MITRAL VALVE STENOSIS [None]
  - MYOCARDIAL INFARCTION [None]
  - CARDIAC FAILURE CONGESTIVE [None]
  - DEATH [None]
  - ATRIAL FIBRILLATION [None]
